FAERS Safety Report 16847054 (Version 1)
Quarter: 2019Q3

REPORT INFORMATION
  Report Type: Spontaneous
  Country: US (occurrence: US)
  Receive Date: 20190924
  Receipt Date: 20190924
  Transmission Date: 20191005
  Serious: Yes (Hospitalization)
  Sender: FDA-Public Use
  Company Number: US-TEVA-2019-US-1112217

PATIENT
  Age: 61 Year
  Sex: Male

DRUGS (4)
  1. AMIODARONE [Suspect]
     Active Substance: AMIODARONE
     Dosage: STARTED 8 WEEKS PRIOR
     Route: 065
  2. DILTIAZEM. [Concomitant]
     Active Substance: DILTIAZEM
     Dosage: STARTED 8 WEEKS PRIOR
     Route: 065
  3. METOPROLOL. [Concomitant]
     Active Substance: METOPROLOL
     Dosage: STARTED 8 WEEKS PRIOR
     Route: 065
  4. WARFARIN [Interacting]
     Active Substance: WARFARIN
     Dosage: STARTED 8 WEEKS PRIOR
     Route: 065

REACTIONS (3)
  - Anticoagulation drug level above therapeutic [Unknown]
  - Drug interaction [Unknown]
  - Drug-induced liver injury [Recovering/Resolving]
